FAERS Safety Report 9058792 (Version 1)
Quarter: 2013Q1

REPORT INFORMATION
  Report Type: Spontaneous
  Country: BR (occurrence: BR)
  Receive Date: 20130204
  Receipt Date: 20130204
  Transmission Date: 20140127
  Serious: Yes (Hospitalization)
  Sender: FDA-Public Use
  Company Number: BR-MYLANLABS-2013S1001660

PATIENT
  Age: 18 Year
  Sex: Male

DRUGS (3)
  1. AMLODIPINE [Suspect]
     Indication: INTENTIONAL OVERDOSE
     Dosage: APPROXIMATELY 30 TABLETS OF AMLODIPINE 5MG
     Route: 048
  2. FLUNARIZINE [Suspect]
     Indication: INTENTIONAL OVERDOSE
     Dosage: 25 FLUNARIZINE 10MG
     Route: 048
  3. HYDROCHLOROTHIAZIDE [Suspect]
     Indication: INTENTIONAL OVERDOSE
     Dosage: 12 HYDROCHLOROTHIAZIDE 25MG
     Route: 048

REACTIONS (11)
  - Overdose [Recovering/Resolving]
  - Poisoning [Recovering/Resolving]
  - Arrhythmia [Recovered/Resolved]
  - Hyperglycaemia [Unknown]
  - Bradycardia [Recovered/Resolved]
  - Atrioventricular block [Recovered/Resolved]
  - Anuria [Unknown]
  - Pulmonary oedema [Recovering/Resolving]
  - Paraesthesia [Unknown]
  - Headache [Unknown]
  - Vertigo [Unknown]
